FAERS Safety Report 12839087 (Version 3)
Quarter: 2017Q3

REPORT INFORMATION
  Report Type: Spontaneous
  Country: US (occurrence: US)
  Receive Date: 20161012
  Receipt Date: 20170714
  Transmission Date: 20171127
  Serious: No
  Sender: FDA-Public Use
  Company Number: US-TEVA-672379USA

PATIENT
  Sex: Female

DRUGS (8)
  1. ALLEGRA [Concomitant]
     Active Substance: FEXOFENADINE HYDROCHLORIDE
  2. ZECUITY [Suspect]
     Active Substance: SUMATRIPTAN SUCCINATE
     Indication: MIGRAINE
     Route: 062
  3. TRAZODONE [Concomitant]
     Active Substance: TRAZODONE HYDROCHLORIDE
  4. WELLBUTRIN [Concomitant]
     Active Substance: BUPROPION HYDROCHLORIDE
  5. DEXILANT [Concomitant]
     Active Substance: DEXLANSOPRAZOLE
  6. SINGULAIR [Concomitant]
     Active Substance: MONTELUKAST SODIUM
  7. BUSPAR [Concomitant]
     Active Substance: BUSPIRONE HYDROCHLORIDE
  8. LEXAPRO [Concomitant]
     Active Substance: ESCITALOPRAM OXALATE

REACTIONS (4)
  - Application site irritation [Unknown]
  - Application site erythema [Unknown]
  - Application site paraesthesia [Unknown]
  - Application site dryness [Unknown]
